FAERS Safety Report 24902833 (Version 1)
Quarter: 2025Q1

REPORT INFORMATION
  Report Type: Spontaneous
  Country: JP (occurrence: JP)
  Receive Date: 20250130
  Receipt Date: 20250130
  Transmission Date: 20250409
  Serious: Yes (Hospitalization, Other)
  Sender: BRISTOL-MYERS SQUIBB COMPANY
  Company Number: JP-BRISTOL-MYERS SQUIBB COMPANY-2025-010400

PATIENT
  Age: 68 Year
  Sex: Male

DRUGS (1)
  1. REVLIMID [Suspect]
     Active Substance: LENALIDOMIDE
     Indication: Plasma cell myeloma

REACTIONS (12)
  - Adenoviral haemorrhagic cystitis [Recovering/Resolving]
  - Pyrexia [Not Recovered/Not Resolved]
  - Haemorrhage [Unknown]
  - Malaise [Unknown]
  - C-reactive protein increased [Unknown]
  - Hydronephrosis [Unknown]
  - Ureteral wall thickening [Unknown]
  - Cystitis noninfective [Unknown]
  - Acute kidney injury [Recovering/Resolving]
  - Liver disorder [Unknown]
  - Cytokine storm [Unknown]
  - Bladder hypertrophy [Unknown]
